FAERS Safety Report 9161990 (Version 1)
Quarter: 2013Q1

REPORT INFORMATION
  Report Type: Spontaneous
  Country: IN (occurrence: None)
  Receive Date: 20130220
  Receipt Date: 20130220
  Transmission Date: 20140127
  Serious: Yes (Other)
  Sender: FDA-Public Use
  Company Number: 2013P1002165

PATIENT
  Age: 15 Year
  Sex: Male
  Weight: 30 kg

DRUGS (3)
  1. VALPROIC ACID [Suspect]
  2. PHENYTOIN [Suspect]
  3. CLONAZEPAM [Concomitant]

REACTIONS (4)
  - Toxicity to various agents [None]
  - Haematoma [None]
  - Eye swelling [None]
  - Anaemia [None]
